FAERS Safety Report 14480740 (Version 2)
Quarter: 2018Q1

REPORT INFORMATION
  Report Type: Spontaneous
  Country: DE (occurrence: DE)
  Receive Date: 20180202
  Receipt Date: 20180320
  Transmission Date: 20180509
  Serious: Yes (Death)
  Sender: FDA-Public Use
  Company Number: DE-PFIZER INC-2018044464

PATIENT
  Age: 78 Year
  Sex: Female
  Weight: 45 kg

DRUGS (4)
  1. AMITRIPTYLINE [Concomitant]
     Active Substance: AMITRIPTYLINE
     Dosage: 25 MG, 1X/DAY (0-0-1)
     Dates: start: 2017
  2. GLENTEK [Concomitant]
     Dosage: 50 MG, 2X/DAY (1-0-1)
     Dates: start: 2015
  3. TORASEMIDE AL [Concomitant]
     Dosage: 10 MG - 5MG- 0
     Dates: start: 2017
  4. TAVOR EXPIDET [Suspect]
     Active Substance: LORAZEPAM
     Indication: SLEEP DISORDER
     Dosage: AT HALF A TABLET OF 1.0 MG AT 20H IN THE EVENING
     Dates: start: 20180104, end: 20180107

REACTIONS (3)
  - Amyotrophic lateral sclerosis [Fatal]
  - Condition aggravated [Fatal]
  - Drug prescribing error [Recovered/Resolved]

NARRATIVE: CASE EVENT DATE: 20180104
